FAERS Safety Report 8082211-X (Version None)
Quarter: 2012Q1

REPORT INFORMATION
  Report Type: 
  Country: None (occurrence: None)
  Receive Date: 20120127
  Receipt Date: 20110131
  Transmission Date: 20120608
  Serious: No
  Sender: FDA-Public Use
  Company Number: US-ABBOTT-11P-163-0702125-00

PATIENT
  Sex: Female
  Weight: 72.64 kg

DRUGS (7)
  1. CELEBREX [Concomitant]
     Indication: PRODUCT USED FOR UNKNOWN INDICATION
  2. VIT B WITH C [Concomitant]
     Indication: PRODUCT USED FOR UNKNOWN INDICATION
  3. WARFIN [Concomitant]
     Indication: PRODUCT USED FOR UNKNOWN INDICATION
  4. METOPROLOL TARTRATE [Concomitant]
     Indication: ATRIAL FIBRILLATION
  5. VIT E [Concomitant]
     Indication: PRODUCT USED FOR UNKNOWN INDICATION
  6. HUMIRA [Suspect]
     Indication: RHEUMATOID ARTHRITIS
  7. ALLOPURINOL [Concomitant]
     Indication: GOUT

REACTIONS (2)
  - BRONCHITIS [None]
  - SINUSITIS [None]
